FAERS Safety Report 23707400 (Version 1)
Quarter: 2024Q2

REPORT INFORMATION
  Report Type: Spontaneous
  Country: US (occurrence: US)
  Receive Date: 20240404
  Receipt Date: 20240404
  Transmission Date: 20240716
  Serious: No
  Sender: FDA-Public Use
  Company Number: US-VIIV HEALTHCARE LIMITED-US2024038089

PATIENT
  Sex: Male
  Weight: 83 kg

DRUGS (7)
  1. DOVATO [Suspect]
     Active Substance: DOLUTEGRAVIR SODIUM\LAMIVUDINE
     Indication: HIV infection
     Dosage: 1 DF, QD 50/ 300 MG
     Route: 048
     Dates: start: 202101
  2. VALTREX [Suspect]
     Active Substance: VALACYCLOVIR HYDROCHLORIDE
     Indication: HIV infection
     Dosage: 0.5 DF, QD  500 MG
     Route: 048
     Dates: start: 20231109, end: 20240122
  3. MEPRON [Suspect]
     Active Substance: ATOVAQUONE
     Indication: HIV infection
     Dosage: UNK, QOD
  4. VENTOLIN HFA [Suspect]
     Active Substance: ALBUTEROL SULFATE
     Indication: Asthma
     Dosage: UNK (90 MG/ACTUATION)
     Route: 055
  5. BACTRIM [Suspect]
     Active Substance: SULFAMETHOXAZOLE\TRIMETHOPRIM
     Indication: Product used for unknown indication
     Dosage: UNK
  6. ATARAX [Suspect]
     Active Substance: HYDROXYZINE HYDROCHLORIDE
     Indication: Product used for unknown indication
     Dosage: UNK
     Dates: start: 20220131
  7. KLONOPIN [Suspect]
     Active Substance: CLONAZEPAM
     Indication: Product used for unknown indication
     Dosage: UNK
     Route: 048

REACTIONS (12)
  - Chills [Unknown]
  - Rash pruritic [Recovering/Resolving]
  - Rash [Unknown]
  - Fatigue [Unknown]
  - Night sweats [Unknown]
  - Vomiting [Unknown]
  - Anorectal disorder [Unknown]
  - Acne [Unknown]
  - Discharge [Unknown]
  - Genital lesion [Recovering/Resolving]
  - Drug intolerance [Unknown]
  - Product dose omission issue [Unknown]
